FAERS Safety Report 4687337-6 (Version None)
Quarter: 2005Q2

REPORT INFORMATION
  Report Type: 
  Country: None (occurrence: None)
  Receive Date: 20050608
  Receipt Date: 20050525
  Transmission Date: 20051028
  Serious: Yes (Other)
  Sender: FDA-Public Use
  Company Number: C-05-0033

PATIENT
  Sex: Female

DRUGS (3)
  1. LACTULOSE [Suspect]
     Indication: AMMONIA ABNORMAL
     Dosage: FOR 10YEARS
  2. LACTULOSE [Suspect]
     Indication: CONSTIPATION
     Dosage: FOR 10YEARS
  3. VICODIN [Concomitant]

REACTIONS (3)
  - DRUG INEFFECTIVE [None]
  - DYSGEUSIA [None]
  - PHARMACEUTICAL PRODUCT COMPLAINT [None]
